FAERS Safety Report 17017963 (Version 1)
Quarter: 2019Q4

REPORT INFORMATION
  Report Type: Report from Study
  Country: GB (occurrence: GB)
  Receive Date: 20191111
  Receipt Date: 20191111
  Transmission Date: 20200122
  Serious: Yes (Hospitalization, Other)
  Sender: FDA-Public Use
  Company Number: NVSC2019GB026051

PATIENT
  Age: 65 Year
  Sex: Female
  Weight: 57.7 kg

DRUGS (5)
  1. LEVOMEPROMAZINE [Concomitant]
     Active Substance: LEVOMEPROMAZINE
     Indication: VOMITING
     Dosage: 6 MG, QD
     Route: 065
     Dates: start: 20190913
  2. DABRAFENIB [Suspect]
     Active Substance: DABRAFENIB
     Dosage: UNK
     Route: 048
  3. DABRAFENIB [Suspect]
     Active Substance: DABRAFENIB
     Indication: ANAPLASTIC THYROID CANCER
     Dosage: UNK, QD
     Route: 048
     Dates: start: 20190926
  4. TRAMETINIB [Suspect]
     Active Substance: TRAMETINIB
     Dosage: UNK
     Route: 048
  5. TRAMETINIB [Suspect]
     Active Substance: TRAMETINIB
     Indication: ANAPLASTIC THYROID CANCER
     Dosage: UNK, QD
     Route: 048
     Dates: start: 20190926, end: 20191101

REACTIONS (5)
  - Pyrexia [Recovered/Resolved]
  - Escherichia infection [Unknown]
  - Vomiting [Not Recovered/Not Resolved]
  - Urosepsis [Unknown]
  - Diarrhoea [Not Recovered/Not Resolved]

NARRATIVE: CASE EVENT DATE: 20191019
